FAERS Safety Report 4634734-0 (Version None)
Quarter: 2005Q2

REPORT INFORMATION
  Report Type: 
  Country: None (occurrence: None)
  Receive Date: 20050413
  Receipt Date: 20050413
  Transmission Date: 20051028
  Serious: Yes (Other)
  Sender: FDA-Public Use
  Company Number: None

PATIENT
  Sex: Female
  Weight: 72.5755 kg

DRUGS (1)
  1. ZANTAC [Suspect]
     Indication: PREOPERATIVE CARE
     Dosage: 50 MG IV X1
     Route: 042

REACTIONS (3)
  - ERYTHEMA [None]
  - NAUSEA [None]
  - PRURITUS [None]
